FAERS Safety Report 24361261 (Version 2)
Quarter: 2024Q4

REPORT INFORMATION
  Report Type: Spontaneous
  Country: US (occurrence: US)
  Receive Date: 20240925
  Receipt Date: 20241007
  Transmission Date: 20250115
  Serious: No
  Sender: MERCK
  Company Number: US-009507513-2409USA003584

PATIENT
  Age: 53 Year
  Sex: Female

DRUGS (12)
  1. SIVEXTRO [Suspect]
     Active Substance: TEDIZOLID PHOSPHATE
     Indication: Bronchiectasis
  2. SIVEXTRO [Suspect]
     Active Substance: TEDIZOLID PHOSPHATE
     Indication: Infection
  3. PRIMAXIN IV [Suspect]
     Active Substance: CILASTATIN SODIUM\IMIPENEM
     Indication: Bronchiectasis
  4. PRIMAXIN IV [Suspect]
     Active Substance: CILASTATIN SODIUM\IMIPENEM
     Indication: Infection
  5. AZITHROMYCIN [Suspect]
     Active Substance: AZITHROMYCIN
     Indication: Bronchiectasis
  6. AZITHROMYCIN [Suspect]
     Active Substance: AZITHROMYCIN
     Indication: Infection
  7. OMADACYCLINE [Suspect]
     Active Substance: OMADACYCLINE
     Indication: Bronchiectasis
  8. OMADACYCLINE [Suspect]
     Active Substance: OMADACYCLINE
     Indication: Infection
  9. CLOFAZIMINE [Suspect]
     Active Substance: CLOFAZIMINE
     Indication: Bronchiectasis
  10. CLOFAZIMINE [Suspect]
     Active Substance: CLOFAZIMINE
     Indication: Infection
  11. AMIKACIN [Suspect]
     Active Substance: AMIKACIN
     Indication: Bronchiectasis
  12. AMIKACIN [Suspect]
     Active Substance: AMIKACIN
     Indication: Infection

REACTIONS (2)
  - Atypical mycobacterium test positive [Unknown]
  - Mycobacterium test positive [Unknown]

NARRATIVE: CASE EVENT DATE: 20230101
